FAERS Safety Report 18423197 (Version 1)
Quarter: 2020Q4

REPORT INFORMATION
  Report Type: Spontaneous
  Country: FR (occurrence: FR)
  Receive Date: 20201024
  Receipt Date: 20201024
  Transmission Date: 20210114
  Serious: Yes (Death, Hospitalization)
  Sender: FDA-Public Use
  Company Number: FR-AXELLIA-003443

PATIENT
  Age: 79 Year
  Sex: Female
  Weight: 87 kg

DRUGS (4)
  1. ATORVASTATIN [Interacting]
     Active Substance: ATORVASTATIN
     Indication: PRODUCT USED FOR UNKNOWN INDICATION
     Route: 048
     Dates: start: 20200717
  2. RIFADINE [Interacting]
     Active Substance: RIFAMPIN
     Indication: STAPHYLOCOCCAL INFECTION
     Dosage: POWDER AND SOLVENT FOR SOLUTION FOR INFUSION
     Route: 041
     Dates: start: 20200731, end: 20200810
  3. DAPTOMYCIN. [Suspect]
     Active Substance: DAPTOMYCIN
     Indication: STAPHYLOCOCCAL INFECTION
     Route: 042
     Dates: start: 20200730, end: 20200810
  4. FENOFIBRATE. [Interacting]
     Active Substance: FENOFIBRATE
     Indication: PRODUCT USED FOR UNKNOWN INDICATION
     Route: 048
     Dates: start: 20200217

REACTIONS (5)
  - Rhabdomyolysis [Recovered/Resolved]
  - Cholestasis [Not Recovered/Not Resolved]
  - Rash papular [Recovered/Resolved]
  - Eosinophilia [Recovered/Resolved]
  - Drug interaction [Unknown]

NARRATIVE: CASE EVENT DATE: 202008
